FAERS Safety Report 7222025-3 (Version None)
Quarter: 2011Q1

REPORT INFORMATION
  Report Type: 
  Country: None (occurrence: None)
  Receive Date: 20110112
  Receipt Date: 20101229
  Transmission Date: 20110831
  Serious: Yes (Hospitalization)
  Sender: FDA-Public Use
  Company Number: KR-CELGENEUS-286-C5013-10123078

PATIENT
  Sex: Female
  Weight: 47.5 kg

DRUGS (7)
  1. ASPIRIN [Concomitant]
     Indication: THROMBOSIS PROPHYLAXIS
     Route: 048
     Dates: start: 20101224
  2. CC-5013 [Suspect]
     Indication: MULTIPLE MYELOMA
     Route: 048
     Dates: start: 20101001
  3. CIMETIDINE [Concomitant]
     Indication: PROPHYLAXIS
     Route: 048
     Dates: start: 20101224
  4. CC-5013 [Suspect]
     Route: 048
     Dates: start: 20101224, end: 20101228
  5. DEXAMETHASONE [Suspect]
     Indication: MULTIPLE MYELOMA
     Route: 065
  6. SUCRALFATE [Concomitant]
     Indication: PROPHYLAXIS
     Route: 048
     Dates: start: 20101224
  7. ITOPRIDE [Concomitant]
     Indication: PROPHYLAXIS
     Route: 048
     Dates: start: 20101224

REACTIONS (1)
  - ABDOMINAL DISTENSION [None]
